FAERS Safety Report 9031663 (Version 1)
Quarter: 2013Q1

REPORT INFORMATION
  Report Type: Spontaneous
  Country: US (occurrence: US)
  Receive Date: 20130124
  Receipt Date: 20130124
  Transmission Date: 20140127
  Serious: Yes (Other)
  Sender: FDA-Public Use
  Company Number: PHEH2013US001759

PATIENT
  Sex: Female

DRUGS (4)
  1. DIOVAN HCT [Suspect]
     Dosage: 1 DF, DAILY (360 MG)
     Route: 048
  2. DIOVAN HCT [Suspect]
     Dosage: 0.5 DF, UNK
  3. DIOVAN [Suspect]
     Dosage: 360 MG, DAILY
     Route: 048
  4. DIOVAN [Suspect]
     Dosage: 0.5 DF, UNK

REACTIONS (2)
  - Dehydration [Unknown]
  - Wrong technique in drug usage process [Unknown]
